FAERS Safety Report 10270666 (Version 5)
Quarter: 2014Q4

REPORT INFORMATION
  Report Type: Report from Study
  Country: US (occurrence: US)
  Receive Date: 20140701
  Receipt Date: 20141023
  Transmission Date: 20150528
  Serious: Yes (Hospitalization)
  Sender: FDA-Public Use
  Company Number: US-ACTELION-A-NJ2014-100927

PATIENT
  Age: 57 Year
  Sex: Female

DRUGS (6)
  1. NOVOCAINE [Suspect]
     Active Substance: PROCAINE
     Indication: PRODUCT USED FOR UNKNOWN INDICATION
     Route: 065
  2. REVATIO [Concomitant]
     Active Substance: SILDENAFIL CITRATE
  3. COUMADIN [Concomitant]
     Active Substance: WARFARIN SODIUM
  4. ASPIRIN. [Concomitant]
     Active Substance: ASPIRIN
  5. TYVASO [Concomitant]
     Active Substance: TREPROSTINIL
  6. MACITENTAN [Suspect]
     Active Substance: MACITENTAN
     Indication: PULMONARY ARTERIAL HYPERTENSION
     Dosage: 10 MG, QD
     Route: 048
     Dates: start: 20140612

REACTIONS (8)
  - Seizure [Unknown]
  - Temporomandibular joint syndrome [Unknown]
  - Overdose [Unknown]
  - Epilepsy [Unknown]
  - Cerebral haematoma [Unknown]
  - Fall [Unknown]
  - Anxiety [Unknown]
  - Contusion [Unknown]
